FAERS Safety Report 12640586 (Version 1)
Quarter: 2016Q3

REPORT INFORMATION
  Report Type: Spontaneous
  Country: AU (occurrence: AU)
  Receive Date: 20160810
  Receipt Date: 20160810
  Transmission Date: 20161109
  Serious: Yes (Other)
  Sender: FDA-Public Use
  Company Number: AU-B.I. PHARMACEUTICALS,INC./RIDGEFIELD-2016-BI-50804AU

PATIENT
  Age: 11 Year
  Sex: Female

DRUGS (2)
  1. CATAPRES [Suspect]
     Active Substance: CLONIDINE HYDROCHLORIDE
     Indication: TIC
     Dosage: 100 MCG
     Route: 065
  2. CATAPRES [Suspect]
     Active Substance: CLONIDINE HYDROCHLORIDE
     Indication: TOURETTE^S DISORDER
     Dosage: 200 MCG
     Route: 065

REACTIONS (11)
  - Screaming [Unknown]
  - Fear [Unknown]
  - Hypotension [Unknown]
  - Dyspnoea [Unknown]
  - Seizure [Unknown]
  - Memory impairment [Unknown]
  - Mobility decreased [Unknown]
  - Respiratory arrest [Unknown]
  - Pallor [Unknown]
  - Hallucination, auditory [Unknown]
  - Feeling abnormal [Unknown]
